FAERS Safety Report 22354592 (Version 1)
Quarter: 2023Q2

REPORT INFORMATION
  Report Type: Spontaneous
  Country: US (occurrence: None)
  Receive Date: 20230522
  Receipt Date: 20230522
  Transmission Date: 20230722
  Serious: Yes (Other)
  Sender: FDA-Public Use
  Company Number: None

PATIENT
  Age: 69 Year
  Sex: Female
  Weight: 55.8 kg

DRUGS (6)
  1. LISINOPRIL [Suspect]
     Active Substance: LISINOPRIL
     Indication: Labile blood pressure
     Dates: start: 20210301, end: 20230203
  2. Linzess 290 [Concomitant]
  3. LEVOTHYROXINE [Concomitant]
     Active Substance: LEVOTHYROXINE
  4. multi vitamin [Concomitant]
  5. cranberry supplement [Concomitant]
  6. MAGNESIUM [Concomitant]
     Active Substance: MAGNESIUM

REACTIONS (7)
  - Cough [None]
  - Abdominal pain upper [None]
  - Oesophageal stenosis [None]
  - Blood alkaline phosphatase decreased [None]
  - Contusion [None]
  - Haemorrhage [None]
  - Rash [None]

NARRATIVE: CASE EVENT DATE: 20230202
